FAERS Safety Report 6758261-X (Version None)
Quarter: 2010Q2

REPORT INFORMATION
  Report Type: 
  Country: None (occurrence: None)
  Receive Date: 20100607
  Receipt Date: 20100601
  Transmission Date: 20101027
  Serious: Yes (Other)
  Sender: FDA-Public Use
  Company Number: JP-SANOFI-AVENTIS-2010SA027955

PATIENT
  Age: 83 Year
  Sex: Male
  Weight: 52 kg

DRUGS (9)
  1. RASURITEK INTRAVENOUS [Suspect]
     Indication: ACUTE MYELOMONOCYTIC LEUKAEMIA
     Route: 041
     Dates: start: 20100406, end: 20100410
  2. SLOW-K [Concomitant]
     Indication: HYPOKALAEMIA
     Route: 048
     Dates: start: 20100406, end: 20100512
  3. ITRIZOLE [Concomitant]
     Indication: PROPHYLAXIS
     Route: 048
     Dates: start: 20100406, end: 20100413
  4. CYLOCIDE [Concomitant]
     Indication: ACUTE MYELOMONOCYTIC LEUKAEMIA
     Route: 042
     Dates: start: 20100407, end: 20100413
  5. IDARUBICIN HCL [Concomitant]
     Indication: ACUTE MYELOMONOCYTIC LEUKAEMIA
     Route: 042
     Dates: start: 20100407, end: 20100408
  6. MINOPEN [Concomitant]
     Indication: PROPHYLAXIS
     Dosage: FREQUENCY: QD OR BID; DOSE 100-200 G
     Route: 042
     Dates: start: 20100405, end: 20100413
  7. ORGARAN [Concomitant]
     Indication: PROPHYLAXIS
     Dosage: DOSE:1250 UNIT(S)
     Route: 042
     Dates: start: 20100405, end: 20100427
  8. SOL-MELCORT [Concomitant]
     Indication: PROPHYLAXIS
     Route: 042
     Dates: start: 20100407, end: 20100408
  9. SAXIZON [Concomitant]
     Indication: PROPHYLAXIS
     Route: 042
     Dates: start: 20100408, end: 20100419

REACTIONS (2)
  - HAEMOLYTIC ANAEMIA [None]
  - JAUNDICE [None]
